FAERS Safety Report 7899492 (Version 3)
Quarter: 2012Q4

REPORT INFORMATION
  Report Type: 
  Country: JP (occurrence: JP)
  Receive Date: 20110414
  Receipt Date: 20121213
  Transmission Date: 20130627
  Serious: Yes (Other)
  Sender: FDA-Public Use
  Company Number: JP-BRISTOL-MYERS SQUIBB COMPANY-15660525

PATIENT
  Age: 7 None
  Sex: Female

DRUGS (1)
  1. BARACLUDE TABS 0.5 MG [Suspect]
     Indication: CHRONIC HEPATITIS B
     Dosage: once in every other day
     Route: 048
     Dates: start: 201012, end: 20110407

REACTIONS (1)
  - Anaemia [Recovering/Resolving]
